FAERS Safety Report 18862801 (Version 2)
Quarter: 2021Q1

REPORT INFORMATION
  Report Type: Spontaneous
  Country: JP (occurrence: JP)
  Receive Date: 20210208
  Receipt Date: 20210301
  Transmission Date: 20210420
  Serious: Yes (Death, Other)
  Sender: FDA-Public Use
  Company Number: JP-ASTRAZENECA-2021A024887

PATIENT
  Age: 67 Year
  Sex: Male

DRUGS (1)
  1. IMFINZI [Suspect]
     Active Substance: DURVALUMAB
     Indication: NON-SMALL CELL LUNG CANCER
     Route: 041
     Dates: start: 20191018, end: 20191212

REACTIONS (2)
  - Haemoptysis [Fatal]
  - Haemorrhage [Unknown]

NARRATIVE: CASE EVENT DATE: 20191212
